FAERS Safety Report 5426807-X (Version None)
Quarter: 2007Q3

REPORT INFORMATION
  Report Type: 
  Country: None (occurrence: None)
  Receive Date: 20070827
  Receipt Date: 20070824
  Transmission Date: 20080115
  Serious: Yes (Death)
  Sender: FDA-Public Use
  Company Number: CO-BOEHRINGER INGELHEIM PHARMACEUTICALS, INC.-2007-BP-19643CL

PATIENT
  Age: 60 Year
  Sex: Female

DRUGS (1)
  1. MOBIC TABLETS 7.5 MG [Suspect]
     Indication: ARTHRALGIA
     Route: 048
     Dates: start: 20070101, end: 20070101

REACTIONS (1)
  - MYOCARDIAL INFARCTION [None]
